FAERS Safety Report 23396384 (Version 3)
Quarter: 2024Q1

REPORT INFORMATION
  Report Type: Spontaneous
  Country: AU (occurrence: AU)
  Receive Date: 20240112
  Receipt Date: 20240212
  Transmission Date: 20240409
  Serious: Yes (Other)
  Sender: FDA-Public Use
  Company Number: AU-002147023-NVSC2023AU278913

PATIENT
  Age: 20 Year
  Sex: Male

DRUGS (6)
  1. MYFORTIC [Suspect]
     Active Substance: MYCOPHENOLATE SODIUM
     Indication: C3 glomerulopathy
     Dosage: 720 MG, BID (FOR AT LEAST 10 MONTHS)
     Route: 058
     Dates: start: 20220922, end: 20231222
  2. MYFORTIC [Suspect]
     Active Substance: MYCOPHENOLATE SODIUM
     Dosage: 720 MG, BID
     Route: 065
     Dates: start: 20230417
  3. CYCLOPHOSPHAMIDE [Suspect]
     Active Substance: CYCLOPHOSPHAMIDE
     Indication: C3 glomerulopathy
     Dosage: UNK (6 DOSES OF CUMULATIVE 500MG TWO DOSES OF 3 GM WEEKS APART)
     Route: 042
     Dates: start: 20231001, end: 20231130
  4. TELMISARTAN [Concomitant]
     Active Substance: TELMISARTAN
     Indication: Product used for unknown indication
     Dosage: 80 MG, QD
     Route: 065
     Dates: start: 20230922
  5. DABIGATRAN [Concomitant]
     Active Substance: DABIGATRAN
     Indication: Product used for unknown indication
     Dosage: 110 MG, QD
     Route: 065
     Dates: start: 20230522
  6. METHYLPREDNISOLONE [Concomitant]
     Active Substance: METHYLPREDNISOLONE
     Indication: Product used for unknown indication
     Dosage: UNK
     Route: 042

REACTIONS (4)
  - Hypogammaglobulinaemia [Unknown]
  - Infection [Unknown]
  - Off label use [Unknown]
  - Drug ineffective [Unknown]
